FAERS Safety Report 25300015 (Version 1)
Quarter: 2025Q2

REPORT INFORMATION
  Report Type: Spontaneous
  Country: SE (occurrence: SE)
  Receive Date: 20250512
  Receipt Date: 20250512
  Transmission Date: 20250717
  Serious: Yes (Death, Life-Threatening, Hospitalization)
  Sender: ACCORD
  Company Number: None

PATIENT
  Age: 69 Year
  Sex: Female

DRUGS (16)
  1. ATORVASTATIN [Suspect]
     Active Substance: ATORVASTATIN
     Indication: Lipids increased
     Dosage: STRENGTH: 80 MG
     Dates: start: 20230703, end: 20250214
  2. BISOPROLOL [Concomitant]
     Active Substance: BISOPROLOL
     Dosage: BISOPROLOL STRENGTH: 2.12 MG AND BISOPROLOL FUMARATE STRENGTH: 2.5 MG
     Dates: start: 20230720
  3. PARAFLEX [Concomitant]
     Active Substance: CHLORZOXAZONE
     Dates: start: 20250212
  4. CHOLECALCIFEROL [Concomitant]
     Active Substance: CHOLECALCIFEROL
     Dosage: STRENGTH: 800 IU
     Dates: start: 20190522
  5. OMEPRAZOLE [Concomitant]
     Active Substance: OMEPRAZOLE
     Dates: start: 20240423
  6. FUROSEMIDE [Concomitant]
     Active Substance: FUROSEMIDE
     Dates: start: 20230713
  7. ASPIRIN [Concomitant]
     Active Substance: ASPIRIN
     Dosage: STRENGTH: 75 MG
     Dates: start: 20230703
  8. MOVICOL [Concomitant]
     Active Substance: POLYETHYLENE GLYCOL 3350\POTASSIUM CHLORIDE\SODIUM BICARBONATE\SODIUM CHLORIDE
     Dates: start: 20230713
  9. UREA [Concomitant]
     Active Substance: UREA
     Dates: start: 20240422
  10. TICAGRELOR [Concomitant]
     Active Substance: TICAGRELOR
     Dosage: STRENGTH: 60 MG
     Dates: start: 20240814
  11. EMPAGLIFLOZIN [Concomitant]
     Active Substance: EMPAGLIFLOZIN
     Dosage: STRENGTH: 10 MG
     Dates: start: 20231115
  12. EZETIMIBE [Concomitant]
     Active Substance: EZETIMIBE
     Dosage: STRENGTH: 10 MG
     Dates: start: 20230831
  13. METFORMIN [Concomitant]
     Active Substance: METFORMIN HYDROCHLORIDE
     Dosage: METFORMIN HYDROCHLORIDE STRENGTH: 850 MG AND METFORMIN?STRENGTH: 662.9 MG
     Dates: start: 20240422
  14. ACETAMINOPHEN [Concomitant]
     Active Substance: ACETAMINOPHEN
     Dates: start: 20230719
  15. NITROLINGUAL [Concomitant]
     Active Substance: NITROGLYCERIN
     Dates: start: 20230702
  16. HYDROCORTISONE [Concomitant]
     Active Substance: HYDROCORTISONE
     Dates: start: 20240422

REACTIONS (3)
  - Rhabdomyolysis [Fatal]
  - Myopathy [Fatal]
  - Acute kidney injury [Fatal]

NARRATIVE: CASE EVENT DATE: 20250214
